FAERS Safety Report 6994432-5 (Version None)
Quarter: 2010Q3

REPORT INFORMATION
  Report Type: 
  Country: None (occurrence: None)
  Receive Date: 20100917
  Receipt Date: 20100907
  Transmission Date: 20110219
  Serious: Yes (Hospitalization, Other)
  Sender: FDA-Public Use
  Company Number: KR-JNJFOC-20100904028

PATIENT
  Age: 25 Year
  Sex: Female

DRUGS (2)
  1. RISPERIDONE [Suspect]
     Indication: SCHIZOPHRENIA
     Route: 065
  2. ANTIPSYCHOTIC DRUGS NOS [Suspect]
     Indication: SCHIZOPHRENIA
     Route: 065

REACTIONS (5)
  - AGGRESSION [None]
  - AMENORRHOEA [None]
  - DRUG EFFECT DECREASED [None]
  - HYPERPROLACTINAEMIA [None]
  - SUICIDE ATTEMPT [None]
